FAERS Safety Report 13767045 (Version 1)
Quarter: 2017Q3

REPORT INFORMATION
  Report Type: Spontaneous
  Country: US (occurrence: US)
  Receive Date: 20170719
  Receipt Date: 20170719
  Transmission Date: 20171127
  Serious: No
  Sender: FDA-Public Use
  Company Number: US-GLAXOSMITHKLINE-US2017107860

PATIENT
  Age: 66 Year
  Sex: Female

DRUGS (1)
  1. ABREVA [Suspect]
     Active Substance: DOCOSANOL
     Indication: ORAL HERPES
     Dosage: UNK (UPTO FIVE TIMES A DAY)
     Dates: start: 20170706, end: 20170710

REACTIONS (4)
  - Lip blister [Not Recovered/Not Resolved]
  - Rash [Not Recovered/Not Resolved]
  - Incorrect drug administration duration [Unknown]
  - Scab [Not Recovered/Not Resolved]

NARRATIVE: CASE EVENT DATE: 20170707
